FAERS Safety Report 6779738-7 (Version None)
Quarter: 2010Q2

REPORT INFORMATION
  Report Type: 
  Country: None (occurrence: None)
  Receive Date: 20100618
  Receipt Date: 20100609
  Transmission Date: 20101027
  Serious: Yes (Hospitalization)
  Sender: FDA-Public Use
  Company Number: US-PFIZER INC-2010072784

PATIENT

DRUGS (2)
  1. LIPITOR [Suspect]
     Dosage: UNK
     Dates: start: 20060101
  2. HYZAAR [Suspect]
     Dosage: UNK

REACTIONS (2)
  - JAUNDICE [None]
  - RASH [None]
